FAERS Safety Report 9982632 (Version 1)
Quarter: 2014Q1

REPORT INFORMATION
  Report Type: Report from Study
  Country: US (occurrence: US)
  Receive Date: 20140307
  Receipt Date: 20140307
  Transmission Date: 20141002
  Serious: No
  Sender: FDA-Public Use
  Company Number: US-ABBVIE-13P-163-1180964-00

PATIENT
  Age: 66 Year
  Sex: Female

DRUGS (4)
  1. HUMIRA [Suspect]
     Indication: COLITIS ULCERATIVE
     Dates: start: 201310
  2. ASACOL [Concomitant]
     Indication: COLITIS ULCERATIVE
  3. OMEPRAZOLE [Concomitant]
     Indication: GASTROOESOPHAGEAL REFLUX DISEASE
  4. METOPROLOL [Concomitant]
     Indication: HEART RATE IRREGULAR

REACTIONS (2)
  - Tooth disorder [Unknown]
  - Pain in jaw [Not Recovered/Not Resolved]
